FAERS Safety Report 4892904-0 (Version None)
Quarter: 2006Q1

REPORT INFORMATION
  Report Type: 
  Country: None (occurrence: None)
  Receive Date: 20060126
  Receipt Date: 20050927
  Transmission Date: 20060701
  Serious: Yes (Death)
  Sender: FDA-Public Use
  Company Number: US-MERCK-0509USA04817

PATIENT
  Age: 42 Year
  Sex: Male
  Weight: 73 kg

DRUGS (5)
  1. VIOXX [Suspect]
     Indication: ARTHRITIS
     Route: 048
     Dates: start: 20030401, end: 20040612
  2. VIOXX [Suspect]
     Indication: BACK DISORDER
     Route: 048
     Dates: start: 20030401, end: 20040612
  3. SKELAXIN [Suspect]
     Route: 065
  4. LORTAB [Concomitant]
     Route: 065
  5. ALTACE [Concomitant]
     Route: 065

REACTIONS (17)
  - AFFECTIVE DISORDER [None]
  - ANXIETY DISORDER [None]
  - ARTHRALGIA [None]
  - BACK PAIN [None]
  - COUGH [None]
  - DEATH [None]
  - DYSPEPSIA [None]
  - DYSPHAGIA [None]
  - HEADACHE [None]
  - INJURY [None]
  - IRRITABILITY [None]
  - MAJOR DEPRESSION [None]
  - MELAENA [None]
  - NECK PAIN [None]
  - PHARYNGOLARYNGEAL PAIN [None]
  - SINUSITIS [None]
  - SOMNOLENCE [None]
